FAERS Safety Report 8465155-0 (Version None)
Quarter: 2012Q2

REPORT INFORMATION
  Report Type: 
  Country: None (occurrence: None)
  Receive Date: 20120626
  Receipt Date: 20120619
  Transmission Date: 20120825
  Serious: Yes (Hospitalization, Other)
  Sender: FDA-Public Use
  Company Number: US-PFIZER INC-2011142901

PATIENT
  Sex: Female
  Weight: 72.562 kg

DRUGS (6)
  1. TAXOL [Suspect]
     Indication: OVARIAN CANCER STAGE III
     Dosage: UNK
     Dates: start: 20090701, end: 20110101
  2. OXYCODONE [Concomitant]
     Dosage: UNK
  3. CARBOPLATIN [Suspect]
     Indication: OVARIAN CANCER STAGE III
     Dosage: UNK
     Dates: start: 20090701, end: 20110101
  4. LORAZEPAM [Concomitant]
     Dosage: UNK
  5. METFORMIN [Concomitant]
     Indication: DIABETES MELLITUS
     Dosage: UNK
  6. GABAPENTIN [Suspect]
     Indication: NERVE INJURY
     Dosage: 300 MG, 3X/DAY
     Route: 048
     Dates: start: 20100101, end: 20110101

REACTIONS (4)
  - CEREBROVASCULAR ACCIDENT [None]
  - OVARIAN CANCER STAGE III [None]
  - DISEASE PROGRESSION [None]
  - WEIGHT DECREASED [None]
